FAERS Safety Report 12724256 (Version 1)
Quarter: 2016Q3

REPORT INFORMATION
  Report Type: Spontaneous
  Country: US (occurrence: US)
  Receive Date: 20160903
  Receipt Date: 20160903
  Transmission Date: 20161109
  Serious: Yes (Hospitalization)
  Sender: FDA-Public Use
  Company Number: None

PATIENT
  Age: 56 Year
  Sex: Female
  Weight: 86.36 kg

DRUGS (2)
  1. CASODEX [Suspect]
     Active Substance: BICALUTAMIDE
     Dates: end: 20150310
  2. LEUPROLIDE ACETATE. [Suspect]
     Active Substance: LEUPROLIDE ACETATE
     Dates: end: 20150302

REACTIONS (15)
  - Alanine aminotransferase increased [None]
  - Diverticulitis [None]
  - Anal incontinence [None]
  - Acute kidney injury [None]
  - Colon neoplasm [None]
  - Pelvic abscess [None]
  - Abdominal abscess [None]
  - Dehydration [None]
  - Aspartate aminotransferase increased [None]
  - White blood cell count increased [None]
  - Colitis [None]
  - Small intestinal obstruction [None]
  - Platelet count increased [None]
  - Diarrhoea [None]
  - Haemoglobin decreased [None]

NARRATIVE: CASE EVENT DATE: 20150317
